FAERS Safety Report 24642439 (Version 1)
Quarter: 2024Q4

REPORT INFORMATION
  Report Type: Spontaneous
  Country: GB (occurrence: GB)
  Receive Date: 20241120
  Receipt Date: 20241120
  Transmission Date: 20250114
  Serious: Yes (Death, Other)
  Sender: AMGEN
  Company Number: GB-AMGEN-GBRSP2024227214

PATIENT
  Sex: Male

DRUGS (2)
  1. LUMAKRAS [Suspect]
     Active Substance: SOTORASIB
     Indication: Non-small cell lung cancer metastatic
     Dosage: UNK
     Route: 065
  2. LUMAKRAS [Suspect]
     Active Substance: SOTORASIB
     Indication: K-ras gene mutation

REACTIONS (3)
  - Death [Fatal]
  - Pneumonitis [Recovering/Resolving]
  - Pleural effusion [Unknown]

NARRATIVE: CASE EVENT DATE: 20241113
